FAERS Safety Report 22190605 (Version 4)
Quarter: 2023Q2

REPORT INFORMATION
  Report Type: Spontaneous
  Country: CA (occurrence: CA)
  Receive Date: 20230410
  Receipt Date: 20230630
  Transmission Date: 20230722
  Serious: Yes (Other)
  Sender: FDA-Public Use
  Company Number: CA-CELLTRION INC.-2022CA018800

PATIENT

DRUGS (24)
  1. INFLECTRA [Suspect]
     Active Substance: INFLIXIMAB-DYYB
     Indication: Crohn^s disease
     Dosage: 5 MG/KG, INDUCTION DOSES AT WEEK 0, 2 AND 6, THEN EVERY 8 WEEKS
     Route: 042
     Dates: start: 20221025
  2. INFLECTRA [Suspect]
     Active Substance: INFLIXIMAB-DYYB
     Dosage: 5 MG/KG, INDUCTION DOSES AT WEEK 0, 2 AND 6, THEN EVERY 8 WEEKS
     Route: 042
     Dates: start: 20221108
  3. INFLECTRA [Suspect]
     Active Substance: INFLIXIMAB-DYYB
     Dosage: 5 MG/KG, INDUCTION DOSES AT WEEK 0, 2 AND 6, THEN EVERY 8 WEEKS
     Route: 042
     Dates: start: 20221206
  4. INFLECTRA [Suspect]
     Active Substance: INFLIXIMAB-DYYB
     Dosage: 5 MG/KG, INDUCTION DOSES AT WEEK 0, 2 AND 6, THEN EVERY 8 WEEKS
     Route: 042
     Dates: start: 20230130
  5. INFLECTRA [Suspect]
     Active Substance: INFLIXIMAB-DYYB
     Dosage: 585 MG, EVERY 8 WEEKS
     Route: 042
     Dates: start: 20230426
  6. INFLECTRA [Suspect]
     Active Substance: INFLIXIMAB-DYYB
     Dosage: 590MG (5MG/KG) AFTER 8 WEEKS
     Route: 042
     Dates: start: 20230620
  7. ALLOPURINOL [Concomitant]
     Active Substance: ALLOPURINOL
     Dosage: 100 MG
     Route: 048
  8. ARIPIPRAZOLE [Concomitant]
     Active Substance: ARIPIPRAZOLE
     Dosage: 2 MG
     Route: 048
  9. ATENOLOL [Concomitant]
     Active Substance: ATENOLOL
     Dosage: 50 MG
     Route: 048
  10. CLONAZEPAM [Concomitant]
     Active Substance: CLONAZEPAM
     Dosage: 0.5 MG (1DF)
     Route: 048
  11. CORTISONE [Concomitant]
     Active Substance: CORTISONE
     Dosage: UNK
  12. FERROUS SULFATE [Concomitant]
     Active Substance: FERROUS SULFATE
     Dosage: 300 MG
     Route: 048
  13. DAPAGLIFLOZIN [Concomitant]
     Active Substance: DAPAGLIFLOZIN
     Dosage: 5 MG
     Route: 048
  14. METFORMIN [Concomitant]
     Active Substance: METFORMIN HYDROCHLORIDE
     Dosage: 500 MG
     Route: 048
  15. NAPROXEN [Concomitant]
     Active Substance: NAPROXEN
     Dosage: 500 UG
     Route: 048
  16. PANTOPRAZOLE [Concomitant]
     Active Substance: PANTOPRAZOLE
     Dosage: 40 MG
     Route: 048
  17. PRAVASTATIN [Concomitant]
     Active Substance: PRAVASTATIN
     Dosage: 40 MG
     Route: 048
  18. PREDNISONE [Concomitant]
     Active Substance: PREDNISONE
     Dosage: UNK
  19. PREDNISONE [Concomitant]
     Active Substance: PREDNISONE
     Dosage: 1 DF
  20. PURINETHOL [Concomitant]
     Active Substance: MERCAPTOPURINE
     Dosage: 50 MG
     Route: 048
  21. RAMIPRIL [Concomitant]
     Active Substance: RAMIPRIL
     Dosage: 5 MG
     Route: 048
  22. TRAZODONE [Concomitant]
     Active Substance: TRAZODONE HYDROCHLORIDE
     Dosage: 150 MG
     Route: 048
  23. VARENICLINE [Concomitant]
     Active Substance: VARENICLINE
     Dosage: 1 MG
     Route: 048
  24. VENLAFAXINE [Concomitant]
     Active Substance: VENLAFAXINE HYDROCHLORIDE
     Dosage: 150 MG
     Route: 048

REACTIONS (15)
  - Pneumonia [Recovered/Resolved]
  - Sinusitis [Recovered/Resolved]
  - Bronchitis [Recovered/Resolved]
  - Infusion site extravasation [Unknown]
  - Hot flush [Recovered/Resolved]
  - Hyperhidrosis [Recovered/Resolved with Sequelae]
  - Fatigue [Unknown]
  - Erythema [Unknown]
  - Swelling face [Unknown]
  - Poor venous access [Recovered/Resolved]
  - Blood pressure systolic increased [Not Recovered/Not Resolved]
  - Oropharyngeal pain [Not Recovered/Not Resolved]
  - Influenza [Not Recovered/Not Resolved]
  - Dehydration [Unknown]
  - Poor venous access [Unknown]

NARRATIVE: CASE EVENT DATE: 20221025
